FAERS Safety Report 19613554 (Version 1)
Quarter: 2021Q3

REPORT INFORMATION
  Report Type: Spontaneous
  Country: US (occurrence: US)
  Receive Date: 20210726
  Receipt Date: 20210726
  Transmission Date: 20211014
  Serious: Yes (Death)
  Sender: FDA-Public Use
  Company Number: None

PATIENT

DRUGS (1)
  1. CELECOXIB 200MG CAPSULES [Suspect]
     Active Substance: CELECOXIB

REACTIONS (1)
  - Death [None]
